FAERS Safety Report 7538785-8 (Version None)
Quarter: 2011Q2

REPORT INFORMATION
  Report Type: 
  Country: None (occurrence: None)
  Receive Date: 20110610
  Receipt Date: 20110321
  Transmission Date: 20111010
  Serious: Yes (Hospitalization, Other)
  Sender: FDA-Public Use
  Company Number: US-BAYER-2010-002167

PATIENT
  Sex: Female
  Weight: 63.492 kg

DRUGS (6)
  1. FEXOFENADINE [Concomitant]
     Dosage: 180 MG, UNK
  2. ERRIN [Concomitant]
     Dosage: UNK
     Dates: start: 20050901, end: 20100401
  3. CEPHALEXIN [Concomitant]
     Dosage: 500 MG, UNK
     Dates: start: 20060701
  4. ORTHO [Concomitant]
     Dosage: UNK
     Dates: start: 20050901, end: 20100401
  5. ULTRAM [Concomitant]
  6. YASMIN [Suspect]
     Indication: DYSMENORRHOEA
     Dosage: UNK
     Route: 048
     Dates: start: 20050101, end: 20070101

REACTIONS (3)
  - CONVULSION [None]
  - CHOLELITHIASIS [None]
  - PAIN [None]
